FAERS Safety Report 4674466-6 (Version None)
Quarter: 2005Q2

REPORT INFORMATION
  Report Type: 
  Country: None (occurrence: None)
  Receive Date: 20050524
  Receipt Date: 20050504
  Transmission Date: 20051028
  Serious: Yes (Death, Other)
  Sender: FDA-Public Use
  Company Number: USA050394226

PATIENT
  Age: 47 Year
  Sex: Female
  Weight: 72 kg

DRUGS (9)
  1. GEMZAR [Suspect]
     Indication: BREAST CANCER METASTATIC
     Dosage: 1141 MG/M2
     Dates: start: 20041001, end: 20050228
  2. ZOMETA [Concomitant]
  3. DIPHENHYDRAMINE HCL [Concomitant]
  4. ALOXI [Concomitant]
  5. DECADRON [Concomitant]
  6. INSULIN [Concomitant]
  7. LISINOPRIL [Concomitant]
  8. LOVASTATIN [Concomitant]
  9. SYNTHROID [Concomitant]

REACTIONS (13)
  - ANAEMIA [None]
  - BLOOD CREATININE INCREASED [None]
  - BLOOD LACTATE DEHYDROGENASE INCREASED [None]
  - DISEASE PROGRESSION [None]
  - HAEMOLYSIS [None]
  - HAEMOLYTIC URAEMIC SYNDROME [None]
  - HYPERTENSION [None]
  - NAUSEA [None]
  - OEDEMA [None]
  - RASH [None]
  - RED BLOOD CELL ABNORMALITY [None]
  - THERAPY NON-RESPONDER [None]
  - THROMBOTIC THROMBOCYTOPENIC PURPURA [None]
